FAERS Safety Report 15397046 (Version 1)
Quarter: 2018Q4

REPORT INFORMATION
  Report Type: Spontaneous
  Country: US (occurrence: US)
  Receive Date: 20180918
  Receipt Date: 20180918
  Transmission Date: 20190204
  Serious: No
  Sender: FDA-Public Use
  Company Number: US-SA-2018SA260014

PATIENT
  Sex: Female

DRUGS (2)
  1. ASPERCREME PAIN RELIEVING [Suspect]
     Active Substance: TROLAMINE SALICYLATE
     Dosage: UNK
     Dates: start: 201809
  2. ASPERCREME PAIN RELIEVING [Suspect]
     Active Substance: TROLAMINE SALICYLATE
     Dosage: UNK

REACTIONS (1)
  - Drug ineffective [Unknown]
